FAERS Safety Report 8587720 (Version 3)
Quarter: 2016Q2

REPORT INFORMATION
  Report Type: Spontaneous
  Country: US (occurrence: US)
  Receive Date: 20120531
  Receipt Date: 20160601
  Transmission Date: 20160815
  Serious: No
  Sender: FDA-Public Use
  Company Number: US-NOVEN-11US002285

PATIENT
  Age: 14 Year
  Sex: Male

DRUGS (6)
  1. DAYTRANA [Suspect]
     Active Substance: METHYLPHENIDATE
     Indication: ATTENTION DEFICIT/HYPERACTIVITY DISORDER
     Dosage: 30 MG, Q A.M.
     Route: 062
     Dates: start: 20050414
  2. CONCERTA [Concomitant]
     Active Substance: METHYLPHENIDATE HYDROCHLORIDE
  3. CHILDRENS VITAMINS [Concomitant]
     Indication: SUPPLEMENTATION THERAPY
     Dosage: 1 TAB, QD
     Route: 048
  4. VYVANSE [Concomitant]
     Active Substance: LISDEXAMFETAMINE DIMESYLATE
  5. ALBUTEROL                          /00139501/ [Concomitant]
     Active Substance: ALBUTEROL
     Indication: ASTHMA EXERCISE INDUCED
     Dosage: 2 PUFFS 30 MIN BEFORE EXERCISE
     Route: 055
  6. DAYTRANA [Suspect]
     Active Substance: METHYLPHENIDATE
     Dosage: TWO 30 MG PATCHES, UNKNOWN
     Route: 062
     Dates: start: 2011

REACTIONS (6)
  - Incorrect drug administration duration [Unknown]
  - Product quality issue [Not Recovered/Not Resolved]
  - Drug administration error [Unknown]
  - Off label use [Not Recovered/Not Resolved]
  - Overdose [Not Recovered/Not Resolved]
  - Wrong technique in product usage process [Not Recovered/Not Resolved]

NARRATIVE: CASE EVENT DATE: 2011
